FAERS Safety Report 23111104 (Version 3)
Quarter: 2023Q4

REPORT INFORMATION
  Report Type: Spontaneous
  Country: JP (occurrence: JP)
  Receive Date: 20231026
  Receipt Date: 20231123
  Transmission Date: 20240109
  Serious: Yes (Death, Life-Threatening, Hospitalization, Other)
  Sender: FDA-Public Use
  Company Number: JP-JAZZ PHARMACEUTICALS-2023-JP-019833

PATIENT
  Age: 56 Year
  Sex: Female

DRUGS (1)
  1. DEFITELIO [Suspect]
     Active Substance: DEFIBROTIDE SODIUM
     Indication: Venoocclusive liver disease
     Dosage: 1600 MILLIGRAM, QD
     Route: 042
     Dates: start: 20230911, end: 20231001

REACTIONS (7)
  - Multiple organ dysfunction syndrome [Fatal]
  - Platelet count decreased [Fatal]
  - Prothrombin time prolonged [Fatal]
  - Activated partial thromboplastin time prolonged [Fatal]
  - Antithrombin III decreased [Fatal]
  - Blood bilirubin increased [Fatal]
  - Ascites [Fatal]

NARRATIVE: CASE EVENT DATE: 20230911
